FAERS Safety Report 16170240 (Version 1)
Quarter: 2019Q2

REPORT INFORMATION
  Report Type: Other
  Country: IT (occurrence: IT)
  Receive Date: 20190408
  Receipt Date: 20190408
  Transmission Date: 20190711
  Serious: Yes (Hospitalization)
  Sender: FDA-Public Use
  Company Number: IT-FARMAPROD-201903-0488

PATIENT
  Age: 65 Year
  Sex: Female

DRUGS (1)
  1. OXERVATE [Suspect]
     Active Substance: CENEGERMIN-BKBJ
     Indication: NEUROTROPHIC KERATOPATHY
     Route: 047
     Dates: start: 20190128, end: 20190316

REACTIONS (1)
  - Hypopyon [Recovering/Resolving]

NARRATIVE: CASE EVENT DATE: 20190316
